FAERS Safety Report 13694433 (Version 3)
Quarter: 2018Q3

REPORT INFORMATION
  Report Type: Report from Study
  Country: None (occurrence: RO)
  Receive Date: 20170627
  Receipt Date: 20180830
  Transmission Date: 20181010
  Serious: Yes (Hospitalization, Disabling, Other)
  Sender: FDA-Public Use
  Company Number: RO-ABBVIE-17K-135-2019495-00

PATIENT
  Age: 55 Year
  Sex: Female
  Weight: 90 kg

DRUGS (14)
  1. ACIFOL [Concomitant]
     Indication: PSORIATIC ARTHROPATHY
     Dosage: 2 TABLETS 2 DAYS AFTER NEMAXIR ADM
     Route: 048
  2. HUMIRA [Suspect]
     Active Substance: ADALIMUMAB
     Indication: PSORIATIC ARTHROPATHY
     Route: 058
     Dates: start: 20130715, end: 201710
  3. METOJECT [Concomitant]
     Active Substance: METHOTREXATE SODIUM
     Indication: PSORIATIC ARTHROPATHY
     Dosage: 10MG/WEEK
     Route: 058
     Dates: start: 2013
  4. TELMISARTAN. [Concomitant]
     Active Substance: TELMISARTAN
     Indication: HYPERTENSION
     Route: 046
     Dates: start: 201311
  5. NORMAXIN [Concomitant]
     Active Substance: CHLORDIAZEPOXIDE\CLIDINIUM BROMIDE\DICYCLOMINE HYDROCHLORIDE
     Indication: PSORIATIC ARTHROPATHY
     Dosage: 9 MONTHS BEFORE REPORT
     Route: 030
  6. HEPATOPROTECT [Concomitant]
     Indication: PROPHYLAXIS
     Dosage: 20 DAYS PER MONTH
     Route: 048
     Dates: start: 201302
  7. HUMIRA [Suspect]
     Active Substance: ADALIMUMAB
     Route: 058
     Dates: start: 2017
  8. INDAPAMID [Concomitant]
     Active Substance: INDAPAMIDE
     Indication: HYPERTENSION
     Route: 048
     Dates: start: 201311
  9. LERIDIP [Concomitant]
     Indication: HYPERTENSION
     Route: 048
     Dates: start: 201311
  10. VIMOVO [Concomitant]
     Active Substance: ESOMEPRAZOLE MAGNESIUM\NAPROXEN
     Indication: PAIN
     Dosage: 10 DAYS PER MONTH
     Route: 048
     Dates: start: 2016
  11. TOLURA [Concomitant]
     Indication: HYPERTENSION
     Route: 048
     Dates: start: 2013
  12. ALPHA D3 [Concomitant]
     Active Substance: ALFACALCIDOL
     Indication: OSTEOPENIA
     Route: 048
     Dates: start: 2012
  13. DETRALEX [Concomitant]
     Active Substance: DIOSMIN\HESPERIDIN
     Indication: CARDIOVASCULAR DISORDER
     Route: 048
     Dates: start: 2008, end: 201806
  14. VESSEL DUE [Concomitant]
     Active Substance: SULODEXIDE
     Indication: CARDIOVASCULAR DISORDER
     Route: 048
     Dates: start: 201807

REACTIONS (15)
  - Musculoskeletal deformity [Not Recovered/Not Resolved]
  - Gastritis [Recovered/Resolved]
  - Osteopenia [Not Recovered/Not Resolved]
  - Weight increased [Recovering/Resolving]
  - Psoriatic arthropathy [Recovered/Resolved]
  - Hypertension [Recovered/Resolved]
  - Goitre [Recovered/Resolved]
  - Cardiovascular disorder [Not Recovered/Not Resolved]
  - Neck pain [Recovered/Resolved]
  - Parathyroid tumour benign [Recovered/Resolved]
  - Cerebrovascular accident [Recovered/Resolved]
  - C-reactive protein increased [Recovered/Resolved]
  - Contusion [Not Recovered/Not Resolved]
  - Neck pain [Recovered/Resolved]
  - Urinary tract infection [Recovered/Resolved]

NARRATIVE: CASE EVENT DATE: 201311
